FAERS Safety Report 4984123-4 (Version None)
Quarter: 2006Q2

REPORT INFORMATION
  Report Type: 
  Country: None (occurrence: None)
  Receive Date: 20060427
  Receipt Date: 20060222
  Transmission Date: 20061013
  Serious: Yes (Hospitalization)
  Sender: FDA-Public Use
  Company Number: US-SP-2006-00432

PATIENT
  Age: 65 Year
  Sex: Male

DRUGS (2)
  1. THERACYS [Suspect]
     Indication: BLADDER CANCER
     Route: 043
     Dates: start: 20051122
  2. CIPROFLOXACIN HCL [Concomitant]

REACTIONS (5)
  - EPIDIDYMITIS [None]
  - FISTULA [None]
  - ORCHITIS [None]
  - PYREXIA [None]
  - SCROTAL PAIN [None]
